FAERS Safety Report 13848507 (Version 2)
Quarter: 2017Q3

REPORT INFORMATION
  Report Type: Spontaneous
  Country: FR (occurrence: FR)
  Receive Date: 20170809
  Receipt Date: 20170825
  Transmission Date: 20171127
  Serious: Yes (Death, Other)
  Sender: FDA-Public Use
  Company Number: FR-ABBVIE-17K-056-2063581-00

PATIENT
  Age: 60 Year
  Sex: Female

DRUGS (1)
  1. HUMIRA [Suspect]
     Active Substance: ADALIMUMAB
     Indication: ANKYLOSING SPONDYLITIS
     Route: 058
     Dates: start: 20170505, end: 201707

REACTIONS (11)
  - Respiratory failure [Unknown]
  - Altered state of consciousness [Unknown]
  - Infection [Fatal]
  - Purpura [Fatal]
  - Cardio-respiratory arrest [Unknown]
  - Acute kidney injury [Unknown]
  - Septic shock [Fatal]
  - Disseminated intravascular coagulation [Fatal]
  - Escherichia urinary tract infection [Unknown]
  - Malaise [Unknown]
  - Anaemia [Unknown]

NARRATIVE: CASE EVENT DATE: 2017
